FAERS Safety Report 20466783 (Version 2)
Quarter: 2022Q1

REPORT INFORMATION
  Report Type: Spontaneous
  Country: US (occurrence: US)
  Receive Date: 20220214
  Receipt Date: 20220314
  Transmission Date: 20220424
  Serious: Yes (Other)
  Sender: FDA-Public Use
  Company Number: US-TEVA-2022-US-2006825

PATIENT
  Sex: Female

DRUGS (1)
  1. NEFAZODONE [Suspect]
     Active Substance: NEFAZODONE
     Route: 065

REACTIONS (4)
  - Drug dependence [Unknown]
  - Product availability issue [Unknown]
  - Recalled product [Unknown]
  - Withdrawal syndrome [Unknown]
